FAERS Safety Report 24010053 (Version 1)
Quarter: 2024Q2

REPORT INFORMATION
  Report Type: Other
  Country: DO (occurrence: DO)
  Receive Date: 20240625
  Receipt Date: 20240625
  Transmission Date: 20240716
  Serious: No
  Sender: FDA-Public Use
  Company Number: DO-TOLMAR, INC.-23DO042115

PATIENT
  Sex: Male

DRUGS (7)
  1. ELIGARD [Suspect]
     Active Substance: LEUPROLIDE ACETATE
     Indication: Prostate cancer
     Dosage: 45 MILLIGRAM, Q 6 MONTH
     Route: 058
     Dates: start: 20230313
  2. ELIGARD [Suspect]
     Active Substance: LEUPROLIDE ACETATE
     Indication: Prostate cancer
     Dosage: UNK
  3. UNSPECIFIED INGREDIENT [Concomitant]
     Active Substance: UNSPECIFIED INGREDIENT
     Indication: Prostate cancer
     Dosage: UNK
     Dates: end: 202304
  4. COMPLEX B [VITAMIN B COMPLEX] [Concomitant]
     Indication: Muscle mass
     Dosage: UNK, 3/WEEK
  5. VITAMIN C [Concomitant]
     Active Substance: ASCORBIC ACID
     Indication: Muscle mass
     Dosage: UNK, 3/WEEK
  6. ERYTHROPOIETIN [Concomitant]
     Active Substance: ERYTHROPOIETIN
     Indication: Muscle mass
     Dosage: UNK, 3/WEEK
  7. CALCIUM SULFATE [Concomitant]
     Active Substance: CALCIUM SULFATE
     Indication: Muscle mass
     Dosage: UNK, 3/WEEK

REACTIONS (1)
  - Off label use [Unknown]
